FAERS Safety Report 8564613-8 (Version None)
Quarter: 2012Q3

REPORT INFORMATION
  Report Type: 
  Country: None (occurrence: None)
  Receive Date: 20120803
  Receipt Date: 20120727
  Transmission Date: 20120928
  Serious: Yes (Other)
  Sender: FDA-Public Use
  Company Number: JP-PFIZER INC-2012183020

PATIENT
  Age: 76 Year
  Sex: Male

DRUGS (1)
  1. TOLTERODINE TARTRATE [Suspect]
     Indication: HYPERTONIC BLADDER
     Dosage: 4 MG, 1X/DAY
     Route: 048
     Dates: start: 20070501, end: 20070701

REACTIONS (2)
  - INTERSTITIAL LUNG DISEASE [None]
  - LARGE INTESTINE CARCINOMA [None]
